FAERS Safety Report 22702610 (Version 2)
Quarter: 2023Q4

REPORT INFORMATION
  Report Type: Spontaneous
  Country: LT (occurrence: LT)
  Receive Date: 20230713
  Receipt Date: 20231206
  Transmission Date: 20240110
  Serious: Yes (Other)
  Sender: FDA-Public Use
  Company Number: LT-ELI_LILLY_AND_COMPANY-LT202307005965

PATIENT
  Age: 61 Year
  Sex: Female

DRUGS (4)
  1. RAMUCIRUMAB [Suspect]
     Active Substance: RAMUCIRUMAB
     Indication: Metastases to ovary
     Dosage: UNK UNK, UNKNOWN
     Route: 065
  2. RAMUCIRUMAB [Suspect]
     Active Substance: RAMUCIRUMAB
     Indication: Metastatic gastric cancer
  3. PACLITAXEL [Suspect]
     Active Substance: PACLITAXEL
     Indication: Metastases to ovary
     Dosage: UNK UNK, UNKNOWN
     Route: 065
  4. PACLITAXEL [Suspect]
     Active Substance: PACLITAXEL
     Indication: Metastatic gastric cancer

REACTIONS (1)
  - Polyneuropathy [Unknown]
